FAERS Safety Report 4426604-8 (Version None)
Quarter: 2004Q3

REPORT INFORMATION
  Report Type: 
  Country: None (occurrence: None)
  Receive Date: 20040812
  Receipt Date: 20040812
  Transmission Date: 20050211
  Serious: Yes (Life-Threatening, Hospitalization, Disabling, Other)
  Sender: FDA-Public Use
  Company Number: None

PATIENT
  Age: 45 Year
  Sex: Female
  Weight: 44.9061 kg

DRUGS (2)
  1. SYNTHROID [Suspect]
     Indication: AUTOIMMUNE THYROIDITIS
     Dosage: DAILY
     Dates: start: 20020717
  2. SYNTHROID [Suspect]
     Indication: HYPOTHYROIDISM
     Dosage: DAILY
     Dates: start: 20020717

REACTIONS (16)
  - CHEST PAIN [None]
  - DYSPHAGIA [None]
  - DYSPHONIA [None]
  - DYSPNOEA [None]
  - HYPERTONIA [None]
  - HYPOAESTHESIA [None]
  - MUSCLE DISORDER [None]
  - MYASTHENIA GRAVIS [None]
  - NECK PAIN [None]
  - OSTEOPOROSIS [None]
  - RASH [None]
  - SPEECH DISORDER [None]
  - SWELLING [None]
  - TRACHEAL DISORDER [None]
  - TREMOR [None]
  - VOCAL CORD PARESIS [None]
